FAERS Safety Report 13719783 (Version 1)
Quarter: 2017Q3

REPORT INFORMATION
  Report Type: Spontaneous
  Country: AU (occurrence: AU)
  Receive Date: 20170705
  Receipt Date: 20170705
  Transmission Date: 20171127
  Serious: Yes (Other)
  Sender: FDA-Public Use
  Company Number: PHHY2017AU078805

PATIENT
  Age: 67 Year
  Sex: Male

DRUGS (1)
  1. VICLOFEN [Suspect]
     Active Substance: DICLOFENAC SODIUM
     Indication: ARTHRITIS
     Dosage: 2 DF, TID
     Route: 048
     Dates: start: 20170518

REACTIONS (4)
  - Pruritus generalised [Recovered/Resolved]
  - Type I hypersensitivity [Unknown]
  - Erythema [Recovered/Resolved]
  - Hypoaesthesia oral [Recovered/Resolved]

NARRATIVE: CASE EVENT DATE: 20170518
